FAERS Safety Report 19956382 (Version 1)
Quarter: 2021Q4

REPORT INFORMATION
  Report Type: Spontaneous
  Country: DE (occurrence: DE)
  Receive Date: 20211014
  Receipt Date: 20211014
  Transmission Date: 20220303
  Serious: Yes (Hospitalization)
  Sender: FDA-Public Use
  Company Number: DE-ADRED-06678-01

PATIENT
  Age: 45 Year
  Sex: Female

DRUGS (3)
  1. EPIRUBICIN [Suspect]
     Active Substance: EPIRUBICIN
     Indication: Product used for unknown indication
     Dosage: BY REGIMEN, INJECTION SOLUTION/INFUSION SOLUTION
     Route: 042
  2. METAMIZOLE [Concomitant]
     Active Substance: METAMIZOLE
     Dosage: 500 MILLIGRAM, PRN (500 MG, AS NEEDED, TABLETS))
     Route: 048
  3. LEVETIRACETAM [Concomitant]
     Active Substance: LEVETIRACETAM
     Dosage: 750 MILLIGRAM (750 MG, 1-0-1-0, TABLETTEN)
     Route: 048

REACTIONS (4)
  - General physical health deterioration [Unknown]
  - Fall [Unknown]
  - Loss of consciousness [Unknown]
  - Asthenia [Unknown]
